FAERS Safety Report 7758629-9 (Version None)
Quarter: 2011Q3

REPORT INFORMATION
  Report Type: 
  Country: None (occurrence: None)
  Receive Date: 20110914
  Receipt Date: 20110905
  Transmission Date: 20111222
  Serious: Yes (Other)
  Sender: FDA-Public Use
  Company Number: WAES 1108USA02295

PATIENT
  Age: 62 Year
  Sex: Female

DRUGS (4)
  1. COZAAR [Suspect]
     Indication: ESSENTIAL HYPERTENSION
     Dosage: 50 MG/DAILY PO
     Route: 048
     Dates: start: 20110722, end: 20110728
  2. DIOVAN [Suspect]
     Indication: ESSENTIAL HYPERTENSION
     Dosage: 80 MG/DAILY PO
     Route: 048
     Dates: start: 20110801
  3. LIPITOR [Concomitant]
  4. PLAVIX [Concomitant]

REACTIONS (1)
  - DRUG ERUPTION [None]
